FAERS Safety Report 9616643 (Version 4)
Quarter: 2014Q1

REPORT INFORMATION
  Report Type: Spontaneous
  Country: US (occurrence: US)
  Receive Date: 20131011
  Receipt Date: 20140106
  Transmission Date: 20141002
  Serious: Yes (Hospitalization, Disabling, Other)
  Sender: FDA-Public Use
  Company Number: US-009507513-1111USA03761

PATIENT
  Sex: Female
  Weight: 92.97 kg

DRUGS (9)
  1. FOSAMAX [Suspect]
     Indication: OSTEOPOROSIS
     Dosage: 10 MG, QD
     Route: 048
     Dates: start: 19970430, end: 200908
  2. FOSAMAX [Suspect]
     Dosage: 70 MG, UNK
     Route: 048
     Dates: end: 2010
  3. RECLAST [Suspect]
     Indication: OSTEOPOROSIS
     Dosage: IV
     Dates: start: 200908, end: 2010
  4. VITAMINS (UNSPECIFIED) [Concomitant]
     Dosage: UNK
     Dates: start: 1990
  5. CALCIUM (UNSPECIFIED) (+) VITAMIN D (UNSPECIFIED) [Concomitant]
     Dosage: 600 MG, UNK
     Dates: start: 1990
  6. IRON (UNSPECIFIED) [Concomitant]
     Dosage: 65 MG, UNK
     Dates: start: 1990
  7. PREMPHASE [Concomitant]
     Indication: MENOPAUSE
     Dosage: 0.625/5MG QD
     Dates: start: 199702
  8. PREMARIN [Concomitant]
     Indication: MENOPAUSE
     Dosage: 0.3 MG, QD
     Dates: start: 199704
  9. INDERAL [Concomitant]
     Indication: MIGRAINE

REACTIONS (102)
  - Femur fracture [Unknown]
  - Intramedullary rod insertion [Unknown]
  - Removal of internal fixation [Unknown]
  - Fracture nonunion [Unknown]
  - Internal fixation of fracture [Unknown]
  - Internal fixation of fracture [Unknown]
  - Internal fixation of fracture [Unknown]
  - Internal fixation of fracture [Unknown]
  - Bone graft [Unknown]
  - Bone graft [Unknown]
  - Skin cancer [Unknown]
  - Sepsis [Unknown]
  - Bone graft [Unknown]
  - Joint arthroplasty [Unknown]
  - Knee arthroplasty [Unknown]
  - Renal failure acute [Unknown]
  - Bone debridement [Unknown]
  - Haematoma infection [Unknown]
  - Device failure [Unknown]
  - Antibiotic therapy [Unknown]
  - Incisional drainage [Unknown]
  - Rheumatoid arthritis [Not Recovered/Not Resolved]
  - Pulmonary embolism [Unknown]
  - Grand mal convulsion [Unknown]
  - Epilepsy [Unknown]
  - Cholecystectomy [Unknown]
  - Basal cell carcinoma [Unknown]
  - Foot fracture [Unknown]
  - Compression fracture [Not Recovered/Not Resolved]
  - Multiple fractures [Unknown]
  - Rib fracture [Unknown]
  - Thoracic vertebral fracture [Not Recovered/Not Resolved]
  - Exostosis [Unknown]
  - Osteopenia [Unknown]
  - Hysterectomy [Unknown]
  - Foot fracture [Unknown]
  - Osteoarthritis [Unknown]
  - Patellofemoral pain syndrome [Unknown]
  - Osteoarthritis [Unknown]
  - Foot fracture [Unknown]
  - Foot fracture [Unknown]
  - Foot deformity [Unknown]
  - Fibromyalgia [Unknown]
  - Hypertension [Unknown]
  - Depression [Unknown]
  - Cardiac murmur [Unknown]
  - Swelling [Unknown]
  - Therapy change [Unknown]
  - Deep vein thrombosis [Unknown]
  - Drug dependence [Unknown]
  - Hypercholesterolaemia [Unknown]
  - Bunion operation [Unknown]
  - Anaemia postoperative [Unknown]
  - Osteogenesis imperfecta [Unknown]
  - Joint effusion [Unknown]
  - Pain [Not Recovered/Not Resolved]
  - Bladder repair [Unknown]
  - Cystocele repair [Unknown]
  - Haemorrhagic anaemia [Unknown]
  - Haemorrhagic anaemia [Unknown]
  - Rectocele repair [Unknown]
  - Stress fracture [Unknown]
  - Atrial fibrillation [Unknown]
  - Gait disturbance [Unknown]
  - Kyphosis [Unknown]
  - Somnolence [Unknown]
  - Mood swings [Unknown]
  - Crying [Unknown]
  - Dry skin [Unknown]
  - Hair texture abnormal [Unknown]
  - Onychoclasis [Unknown]
  - Increased tendency to bruise [Unknown]
  - Muscular weakness [Unknown]
  - Musculoskeletal stiffness [Unknown]
  - Nasal operation [Unknown]
  - Temperature intolerance [Unknown]
  - Nasal septum deviation [Unknown]
  - Hyperhidrosis [Unknown]
  - Dyspnoea exertional [Unknown]
  - Patellofemoral pain syndrome [Unknown]
  - Osteoarthritis [Unknown]
  - Spinal deformity [Unknown]
  - Fracture nonunion [Unknown]
  - Lumbar radiculopathy [Unknown]
  - Chronic obstructive pulmonary disease [Not Recovered/Not Resolved]
  - Incontinence [Unknown]
  - Cardiac failure congestive [Unknown]
  - Polydipsia [Unknown]
  - Fatigue [Not Recovered/Not Resolved]
  - Chest pain [Unknown]
  - Pollakiuria [Not Recovered/Not Resolved]
  - Nocturia [Unknown]
  - Insomnia [Unknown]
  - Asthenia [Unknown]
  - Arthralgia [Unknown]
  - Asthenia [Unknown]
  - Constipation [Unknown]
  - Constipation [Unknown]
  - Dizziness [Unknown]
  - Dizziness [Unknown]
  - Drug ineffective [Unknown]
  - Gastrooesophageal reflux disease [Unknown]
